FAERS Safety Report 26034632 (Version 3)
Quarter: 2025Q4

REPORT INFORMATION
  Report Type: Spontaneous
  Country: US (occurrence: US)
  Receive Date: 20251112
  Receipt Date: 20251217
  Transmission Date: 20260117
  Serious: No
  Sender: PFIZER
  Company Number: US-PFIZER INC-202500218674

PATIENT
  Age: 13 Year
  Sex: Female
  Weight: 31.746 kg

DRUGS (3)
  1. GENOTROPIN [Suspect]
     Active Substance: SOMATROPIN
     Indication: Turner^s syndrome
     Dosage: 1.0 MG, DAILY
  2. GENOTROPIN [Suspect]
     Active Substance: SOMATROPIN
     Dosage: 1.6 MG, ONCE DAILY IN THE EVENING
  3. VIVELLE [Concomitant]
     Active Substance: ESTRADIOL
     Dosage: ONE PATCH ON 3 DAYS FOR DEVELOPMENT

REACTIONS (4)
  - Drug dose omission by device [Unknown]
  - Wrong technique in device usage process [Unknown]
  - Product communication issue [Unknown]
  - Device mechanical issue [Unknown]
